FAERS Safety Report 10951495 (Version 1)
Quarter: 2015Q1

REPORT INFORMATION
  Report Type: Report from Study
  Country: US (occurrence: US)
  Receive Date: 20150324
  Receipt Date: 20150324
  Transmission Date: 20150721
  Serious: Yes (Hospitalization)
  Sender: FDA-Public Use
  Company Number: PHEH2015US005415

PATIENT
  Sex: Female

DRUGS (1)
  1. TOBI PODHALER [Suspect]
     Active Substance: TOBRAMYCIN
     Indication: PRODUCT USED FOR UNKNOWN INDICATION
     Dosage: 4 DF, EVERY 12 HOURS
     Route: 055

REACTIONS (4)
  - Cough [Unknown]
  - Condition aggravated [Unknown]
  - Cystic fibrosis [Unknown]
  - Dyspnoea [Unknown]
